FAERS Safety Report 18559181 (Version 1)
Quarter: 2020Q4

REPORT INFORMATION
  Report Type: Spontaneous
  Country: US (occurrence: US)
  Receive Date: 20201127
  Receipt Date: 20201127
  Transmission Date: 20210114
  Serious: No
  Sender: FDA-Public Use
  Company Number: None

PATIENT
  Age: 71 Year
  Sex: Female
  Weight: 128.25 kg

DRUGS (22)
  1. IBUPROFEN. [Concomitant]
     Active Substance: IBUPROFEN
  2. ZOFRAN, TRAMADOL [Concomitant]
  3. PREDNISONE, SPIRIVA [Concomitant]
  4. WELLBUTRIN [Concomitant]
     Active Substance: BUPROPION HYDROCHLORIDE
  5. GABAPENTIN. [Concomitant]
     Active Substance: GABAPENTIN
  6. LATANOPROST. [Concomitant]
     Active Substance: LATANOPROST
  7. PROAIR, RANITIDINE [Concomitant]
  8. ALBUTEROL. [Concomitant]
     Active Substance: ALBUTEROL
  9. BENZONATATE. [Concomitant]
     Active Substance: BENZONATATE
  10. LASIX [Concomitant]
     Active Substance: FUROSEMIDE
  11. COMPAZINE, PYRIDYUM [Concomitant]
  12. COLACE [Concomitant]
     Active Substance: DOCUSATE SODIUM
  13. LOSARTAN, ZOLPIDEM [Concomitant]
  14. MAGOX, VIT D [Concomitant]
  15. FIBER [Concomitant]
     Active Substance: PSYLLIUM HUSK
  16. OMEPRAZOLE, VENLAFAXINE [Concomitant]
  17. BIOTIN [Concomitant]
     Active Substance: BIOTIN
  18. SUTENT [Suspect]
     Active Substance: SUNITINIB MALATE
     Indication: RENAL CANCER
     Route: 048
     Dates: start: 20201016
  19. ANORO [Concomitant]
     Active Substance: UMECLIDINIUM BROMIDE\VILANTEROL TRIFENATATE
  20. DILTIAZEM. [Concomitant]
     Active Substance: DILTIAZEM
  21. PERCOCET, TIZANIDINE [Concomitant]
  22. BIOFLEX [Concomitant]
     Active Substance: GLUCOSAMINE SULFATE

REACTIONS (3)
  - Chest pain [None]
  - Tendon injury [None]
  - Asthenia [None]

NARRATIVE: CASE EVENT DATE: 20201127
